FAERS Safety Report 6403000-5 (Version None)
Quarter: 2009Q4

REPORT INFORMATION
  Report Type: 
  Country: None (occurrence: None)
  Receive Date: 20091008
  Receipt Date: 20090508
  Transmission Date: 20100525
  Serious: Yes (Other)
  Sender: FDA-Public Use
  Company Number: 1000005634

PATIENT
  Age: 58 Year
  Sex: Female

DRUGS (5)
  1. CAMPRAL [Suspect]
     Indication: ALCOHOLISM
     Dosage: ORAL : 1998 MG (666 MG, 3 IN 1 D), ORAL
     Route: 048
     Dates: start: 20081001, end: 20090317
  2. CAMPRAL [Suspect]
     Indication: ALCOHOLISM
     Dosage: ORAL : 1998 MG (666 MG, 3 IN 1 D), ORAL
     Route: 048
     Dates: start: 20090318
  3. METOPROLOL [Concomitant]
  4. COZAAR [Concomitant]
  5. EFFEXOR XR [Concomitant]

REACTIONS (8)
  - ASTHENIA [None]
  - DECREASED APPETITE [None]
  - DEPRESSION [None]
  - DIARRHOEA [None]
  - DIZZINESS [None]
  - FLATULENCE [None]
  - SUICIDAL IDEATION [None]
  - TREMOR [None]
